FAERS Safety Report 8135420-5 (Version None)
Quarter: 2012Q1

REPORT INFORMATION
  Report Type: 
  Country: None (occurrence: None)
  Receive Date: 20120214
  Receipt Date: 20120208
  Transmission Date: 20120608
  Serious: Yes (Other)
  Sender: FDA-Public Use
  Company Number: US-JNJFOC-20120205212

PATIENT
  Age: 63 Year
  Sex: Male

DRUGS (19)
  1. METHOTREXATE [Suspect]
     Indication: PROPHYLAXIS
     Route: 037
  2. DOXORUBICIN HCL [Suspect]
     Indication: MANTLE CELL LYMPHOMA STAGE IV
     Route: 042
  3. PREDNISONE TAB [Suspect]
     Indication: MANTLE CELL LYMPHOMA STAGE IV
     Route: 065
  4. METHOTREXATE [Suspect]
     Route: 037
  5. METHOTREXATE [Suspect]
     Route: 037
  6. METOPROLOL TARTRATE [Concomitant]
     Indication: HYPERTENSION
     Route: 048
  7. METHOTREXATE [Suspect]
     Route: 037
  8. RITUXIMAB [Suspect]
     Indication: MANTLE CELL LYMPHOMA STAGE IV
     Route: 065
  9. METHOTREXATE [Suspect]
     Route: 037
  10. CYCLOPHOSPHAMIDE [Suspect]
     Indication: MANTLE CELL LYMPHOMA STAGE IV
     Route: 065
  11. METHOTREXATE [Suspect]
     Route: 037
  12. METOPROLOL TARTRATE [Concomitant]
     Indication: ATRIAL FIBRILLATION
     Route: 048
  13. NITROGLYCERIN [Concomitant]
     Indication: HYPERTENSION
     Route: 060
  14. ISOSORBIDE MONONITRATE [Concomitant]
     Indication: HYPERTENSION
     Route: 048
  15. ISOSORBIDE MONONITRATE [Concomitant]
     Indication: ATRIAL FIBRILLATION
     Route: 048
  16. DIGOXIN [Concomitant]
     Indication: ATRIAL FIBRILLATION
     Route: 065
  17. DIGOXIN [Concomitant]
     Indication: HYPERTENSION
     Route: 065
  18. NITROGLYCERIN [Concomitant]
     Indication: ATRIAL FIBRILLATION
     Route: 060
  19. VINCRISTINE [Suspect]
     Indication: MANTLE CELL LYMPHOMA STAGE IV
     Route: 065

REACTIONS (1)
  - PULMONARY EMBOLISM [None]
